FAERS Safety Report 9373739 (Version 3)
Quarter: 2013Q3

REPORT INFORMATION
  Report Type: Spontaneous
  Country: US (occurrence: US)
  Receive Date: 20130628
  Receipt Date: 20130828
  Transmission Date: 20140515
  Serious: Yes (Death, Hospitalization, Other)
  Sender: FDA-Public Use
  Company Number: US-009507513-0805USA00924

PATIENT
  Sex: Male

DRUGS (4)
  1. FOSAMAX [Suspect]
     Indication: OSTEOPOROSIS PROPHYLAXIS
     Dosage: 70 MG, UNK
     Route: 048
     Dates: start: 200205, end: 200708
  2. NEURONTIN [Concomitant]
     Indication: NEUROPATHY PERIPHERAL
  3. NEURONTIN [Concomitant]
     Indication: SPINAL COLUMN STENOSIS
  4. ACTONEL [Concomitant]
     Dates: start: 200304, end: 200310

REACTIONS (42)
  - Oral infection [Unknown]
  - Respiratory failure [Fatal]
  - Lung neoplasm malignant [Fatal]
  - Adverse event [Unknown]
  - Peroneal nerve palsy [Unknown]
  - Blindness [Unknown]
  - Pancreatitis [Recovered/Resolved]
  - Osteonecrosis [Unknown]
  - Osteonecrosis of jaw [Unknown]
  - Osteomyelitis [Unknown]
  - Tooth disorder [Unknown]
  - Dental caries [Unknown]
  - Impaired healing [Unknown]
  - Weight decreased [Unknown]
  - Subacute endocarditis [Unknown]
  - Tooth repair [Unknown]
  - Gingivitis [Not Recovered/Not Resolved]
  - Poor personal hygiene [Unknown]
  - Dental plaque [Unknown]
  - Periodontitis [Not Recovered/Not Resolved]
  - Tooth repair [Unknown]
  - Tooth extraction [Unknown]
  - Pulpitis dental [Unknown]
  - Device breakage [Unknown]
  - Dental prosthesis placement [Unknown]
  - Dental prosthesis placement [Unknown]
  - Oral pain [Unknown]
  - Blood glucose decreased [Recovering/Resolving]
  - Cataract operation [Unknown]
  - Cataract operation complication [Unknown]
  - Intestinal obstruction [Recovered/Resolved]
  - Haematuria [Unknown]
  - Haematemesis [Unknown]
  - Corneal abrasion [Unknown]
  - Anaemia [Unknown]
  - Anaemia of chronic disease [Not Recovered/Not Resolved]
  - Dyskinesia [Unknown]
  - Leukocytosis [Unknown]
  - Gastrointestinal haemorrhage [Unknown]
  - Adverse drug reaction [Unknown]
  - Asthenia [Unknown]
  - Cataract [Unknown]
